FAERS Safety Report 5814331-1 (Version None)
Quarter: 2008Q3

REPORT INFORMATION
  Report Type: 
  Country: None (occurrence: None)
  Receive Date: 20080715
  Receipt Date: 20080630
  Transmission Date: 20090109
  Serious: Yes (Hospitalization)
  Sender: FDA-Public Use
  Company Number: ALA_00099_2008

PATIENT
  Age: 11 Year
  Sex: Male

DRUGS (3)
  1. OXYMETHOLONE [Suspect]
     Indication: FULL BLOOD COUNT DECREASED
     Dosage: 50 MG QD
  2. NEUPOGEN [Suspect]
     Indication: NEUTROPENIA
     Dosage: 2 DF 1X/WEEK
  3. EPOGEN [Suspect]
     Indication: FULL BLOOD COUNT DECREASED
     Dosage: 400 UNITS/M^2, 3 TIMES PER WEEK

REACTIONS (10)
  - ABDOMINAL PAIN UPPER [None]
  - HAEMOGLOBIN DECREASED [None]
  - INTRA-ABDOMINAL HAEMORRHAGE [None]
  - MASS [None]
  - PLATELET COUNT DECREASED [None]
  - SPLENIC HAEMATOMA [None]
  - SPLENIC RUPTURE [None]
  - SPLENOMEGALY [None]
  - THROMBOCYTOPENIA [None]
  - VASCULAR PURPURA [None]
